FAERS Safety Report 16694772 (Version 1)
Quarter: 2019Q3

REPORT INFORMATION
  Report Type: Spontaneous
  Country: MA (occurrence: MA)
  Receive Date: 20190812
  Receipt Date: 20190812
  Transmission Date: 20191004
  Serious: Yes (Other)
  Sender: FDA-Public Use
  Company Number: MA-PFM-2019-09743

PATIENT

DRUGS (2)
  1. VINORELBINE [Suspect]
     Active Substance: VINORELBINE TARTRATE
     Indication: LUNG ADENOCARCINOMA
     Dosage: 25 MG/M2, CYCLICAL (D1 AND D8)
     Route: 065
  2. CARBOPLATIN. [Suspect]
     Active Substance: CARBOPLATIN
     Indication: LUNG ADENOCARCINOMA
     Route: 065

REACTIONS (3)
  - Trichoglossia [Recovered/Resolved]
  - Glossodynia [Recovered/Resolved]
  - Hypertrophy of tongue papillae [Recovered/Resolved]
